FAERS Safety Report 14964189 (Version 1)
Quarter: 2018Q2

REPORT INFORMATION
  Report Type: Spontaneous
  Country: US (occurrence: US)
  Receive Date: 20180510
  Receipt Date: 20180510
  Transmission Date: 20180711
  Serious: Yes (Death)
  Sender: FDA-Public Use
  Company Number: None

PATIENT
  Age: 67 Year
  Sex: Female
  Weight: 52.2 kg

DRUGS (1)
  1. MEMANTINE HYDROCHLORIDE. [Suspect]
     Active Substance: MEMANTINE HYDROCHLORIDE
     Dates: end: 20170524

REACTIONS (7)
  - Blood sodium decreased [None]
  - Fatigue [None]
  - Malignant neoplasm progression [None]
  - Condition aggravated [None]
  - Gait disturbance [None]
  - Metastatic uterine cancer [None]
  - Asthenia [None]

NARRATIVE: CASE EVENT DATE: 20170528
